FAERS Safety Report 7209463-X (Version None)
Quarter: 2011Q1

REPORT INFORMATION
  Report Type: 
  Country: None (occurrence: None)
  Receive Date: 20110104
  Receipt Date: 20101214
  Transmission Date: 20110831
  Serious: No
  Sender: FDA-Public Use
  Company Number: US-AMGEN-TCS398902

PATIENT

DRUGS (3)
  1. ENBREL [Suspect]
     Indication: PSORIATIC ARTHROPATHY
     Dosage: 50 MG, QWK
     Dates: start: 20100310, end: 20101001
  2. LEFLUNOMIDE [Concomitant]
     Dosage: 20 MG, QD
     Route: 048
     Dates: start: 20091001
  3. METHOTREXATE [Concomitant]
     Dosage: 2.5 MG, 3 TIMES/WK

REACTIONS (3)
  - MYALGIA [None]
  - SKIN INFECTION [None]
  - INJECTION SITE PAIN [None]
